FAERS Safety Report 6957901-X (Version None)
Quarter: 2010Q3

REPORT INFORMATION
  Report Type: 
  Country: None (occurrence: None)
  Receive Date: 20100830
  Receipt Date: 20100830
  Transmission Date: 20110219
  Serious: No
  Sender: FDA-Public Use
  Company Number: None

PATIENT

DRUGS (1)
  1. IPRATROPIUM 0.02% 0.05MG/2.5ML COBALT [Suspect]

REACTIONS (3)
  - MEDICATION ERROR [None]
  - PRODUCT CONTAINER ISSUE [None]
  - PRODUCT LABEL ISSUE [None]
